FAERS Safety Report 9909587 (Version 1)
Quarter: 2014Q1

REPORT INFORMATION
  Report Type: Spontaneous
  Country: US (occurrence: None)
  Receive Date: 20140214
  Receipt Date: 20140214
  Transmission Date: 20141002
  Serious: No
  Sender: FDA-Public Use
  Company Number: None

PATIENT
  Age: 26 Year
  Sex: Male

DRUGS (10)
  1. CLOZAPINE [Suspect]
     Route: 048
  2. DEPAKOTE [Concomitant]
  3. FLUVOXAMINE [Concomitant]
  4. GABAPENTI [Concomitant]
  5. MIRTAZAPINE [Concomitant]
  6. MULTIVITAMIN [Concomitant]
  7. INVEGA SUSTENNA [Concomitant]
  8. PROPRANOLOL [Concomitant]
  9. QUETIAPINE [Concomitant]
  10. VENLAFAXINE [Concomitant]
     Route: 048

REACTIONS (1)
  - Unevaluable event [None]
